FAERS Safety Report 8860542 (Version 3)
Quarter: 2013Q1

REPORT INFORMATION
  Report Type: Spontaneous
  Country: US (occurrence: US)
  Receive Date: 20121025
  Receipt Date: 20130118
  Transmission Date: 20140127
  Serious: Yes (Hospitalization, Other)
  Sender: FDA-Public Use
  Company Number: US-009507513-1210USA009751

PATIENT
  Sex: Female
  Weight: 73.92 kg

DRUGS (6)
  1. PEG-INTRON [Suspect]
     Indication: HEPATITIS C
     Dosage: 80 MICROGRAM, QW
     Route: 058
     Dates: start: 201207, end: 201210
  2. PEG-INTRON [Suspect]
     Indication: HEPATIC CIRRHOSIS
  3. RIBASPHERE [Suspect]
     Indication: HEPATITIS C
     Dosage: UNK
     Dates: end: 2012
  4. RIBASPHERE [Suspect]
     Indication: HEPATIC CIRRHOSIS
  5. TELAPREVIR [Suspect]
     Indication: HEPATITIS C
     Dosage: UNK
     Dates: end: 2012
  6. TELAPREVIR [Suspect]
     Indication: HEPATIC CIRRHOSIS

REACTIONS (4)
  - Encephalopathy [Recovered/Resolved]
  - Ascites [Recovered/Resolved]
  - Thrombocytopenia [Recovered/Resolved]
  - Adverse event [Unknown]
